FAERS Safety Report 25149457 (Version 2)
Quarter: 2025Q2

REPORT INFORMATION
  Report Type: Report from Study
  Country: IN (occurrence: IN)
  Receive Date: 20250402
  Receipt Date: 20250514
  Transmission Date: 20250716
  Serious: Yes (Hospitalization, Other)
  Sender: CIPLA
  Company Number: IN-CIPLA LTD.-2025IN03747

PATIENT

DRUGS (10)
  1. TORSEMIDE [Suspect]
     Active Substance: TORSEMIDE
     Indication: Product used for unknown indication
     Route: 048
  2. METOPROLOL TARTRATE [Suspect]
     Active Substance: METOPROLOL TARTRATE
     Indication: Product used for unknown indication
     Route: 048
  3. PANTOPRAZOLE SODIUM [Concomitant]
     Active Substance: PANTOPRAZOLE SODIUM
     Indication: Product used for unknown indication
     Route: 065
     Dates: start: 202312
  4. ENSET 8 [Concomitant]
     Indication: Product used for unknown indication
     Route: 065
     Dates: start: 202312
  5. MOVITOL [Concomitant]
     Indication: Product used for unknown indication
     Route: 065
     Dates: start: 202312
  6. AZUVAS [Concomitant]
     Indication: Product used for unknown indication
     Route: 065
     Dates: start: 202312
  7. DOLOPAR [Concomitant]
     Indication: Product used for unknown indication
     Route: 065
     Dates: start: 202312
  8. ZORYL [Concomitant]
     Indication: Product used for unknown indication
     Route: 065
     Dates: start: 202312
  9. FLAVEDON MR [Concomitant]
     Indication: Product used for unknown indication
     Route: 065
     Dates: start: 202312
  10. LEVERA [LEVETIRACETAM] [Concomitant]
     Indication: Product used for unknown indication
     Route: 065
     Dates: start: 202312

REACTIONS (3)
  - Myocardial infarction [Recovering/Resolving]
  - Cerebral thrombosis [Recovering/Resolving]
  - Paralysis [Recovering/Resolving]

NARRATIVE: CASE EVENT DATE: 20250301
